FAERS Safety Report 9108311 (Version 3)
Quarter: 2013Q2

REPORT INFORMATION
  Report Type: Spontaneous
  Country: US (occurrence: US)
  Receive Date: 20130222
  Receipt Date: 20130530
  Transmission Date: 20140414
  Serious: Yes (Other)
  Sender: FDA-Public Use
  Company Number: US-PAR PHARMACEUTICAL, INC-2013SCPR005569

PATIENT
  Sex: 0

DRUGS (1)
  1. CABERGOLINE [Suspect]
     Indication: PITUITARY TUMOUR
     Dosage: 0.25 MG, TWICE A WEEK (HALF TABLET)
     Route: 048
     Dates: start: 20121121, end: 20121219

REACTIONS (4)
  - Tumour haemorrhage [Unknown]
  - Neoplasm [Unknown]
  - Headache [Recovered/Resolved]
  - Nausea [Recovered/Resolved]
